FAERS Safety Report 16379644 (Version 1)
Quarter: 2019Q2

REPORT INFORMATION
  Report Type: Spontaneous
  Country: US (occurrence: US)
  Receive Date: 20190531
  Receipt Date: 20190531
  Transmission Date: 20190711
  Serious: No
  Sender: FDA-Public Use
  Company Number: US-BAUSCH-BL-2019-014955

PATIENT
  Age: 25 Year
  Sex: Female

DRUGS (3)
  1. MELATONIN [Concomitant]
     Active Substance: MELATONIN
     Indication: INSOMNIA
     Route: 048
  2. ATIVAN [Suspect]
     Active Substance: LORAZEPAM
     Indication: INSOMNIA
     Route: 048
  3. ATIVAN [Suspect]
     Active Substance: LORAZEPAM
     Route: 048
     Dates: start: 20190520

REACTIONS (5)
  - Asthma [Unknown]
  - Heart rate decreased [Unknown]
  - Intentional product use issue [Unknown]
  - Thinking abnormal [Unknown]
  - Dyspepsia [Unknown]

NARRATIVE: CASE EVENT DATE: 20190520
